FAERS Safety Report 8002090-6 (Version None)
Quarter: 2011Q4

REPORT INFORMATION
  Report Type: 
  Country: None (occurrence: None)
  Receive Date: 20111222
  Receipt Date: 20111215
  Transmission Date: 20120403
  Serious: Yes (Hospitalization)
  Sender: FDA-Public Use
  Company Number: US-ABBOTT-11P-163-0883469-02

PATIENT
  Sex: Male

DRUGS (14)
  1. METHOTREXATE [Concomitant]
     Indication: ARTHRITIS
  2. COUMADIN [Concomitant]
     Indication: CARDIAC DISORDER
  3. ALTACE [Concomitant]
     Indication: BLOOD PRESSURE
  4. LIPITOR [Concomitant]
     Indication: BLOOD CHOLESTEROL
     Dates: start: 20110101
  5. CELECOXIB [Concomitant]
     Indication: ARTHRITIS
  6. TYLENOL W/ CODEINE NO. 3 [Concomitant]
     Indication: ARTHRALGIA
     Dosage: 300/30MG
  7. VALSARTAN [Concomitant]
     Indication: BLOOD PRESSURE
  8. METHOTREXATE [Concomitant]
     Indication: PSORIASIS
     Dates: start: 20080101
  9. FOLIC ACID [Concomitant]
     Indication: VITAMIN SUPPLEMENTATION
  10. HYDROCHLOROTHIAZIDE [Concomitant]
     Indication: DIURETIC THERAPY
  11. FOLIC ACID [Concomitant]
     Indication: ARTHRITIS
  12. HUMIRA [Suspect]
     Indication: PSORIASIS
     Route: 058
     Dates: start: 20110102, end: 20111109
  13. OMEPRAZOLE [Concomitant]
     Indication: GASTROOESOPHAGEAL REFLUX DISEASE
     Dates: start: 20070506
  14. TRILIPIX [Concomitant]
     Indication: BLOOD CHOLESTEROL
     Dates: start: 20070506

REACTIONS (4)
  - DYSPNOEA [None]
  - COUGH [None]
  - DYSPHAGIA [None]
  - CHEST DISCOMFORT [None]
